FAERS Safety Report 21922445 (Version 3)
Quarter: 2023Q1

REPORT INFORMATION
  Report Type: Report from Study
  Country: CO (occurrence: CO)
  Receive Date: 20230128
  Receipt Date: 20230310
  Transmission Date: 20230418
  Serious: Yes (Death, Hospitalization)
  Sender: FDA-Public Use
  Company Number: CO-002147023-NVSC2023CO019348

PATIENT
  Sex: Female

DRUGS (1)
  1. TASIGNA [Suspect]
     Active Substance: NILOTINIB
     Indication: Chronic myeloid leukaemia
     Dosage: 300 MG, Q12H
     Route: 048

REACTIONS (5)
  - Death [Fatal]
  - COVID-19 [Unknown]
  - Cervix carcinoma [Unknown]
  - Second primary malignancy [Unknown]
  - Vaginal haemorrhage [Unknown]
